FAERS Safety Report 25079940 (Version 1)
Quarter: 2025Q1

REPORT INFORMATION
  Report Type: Report from Study
  Country: FR (occurrence: FR)
  Receive Date: 20250314
  Receipt Date: 20250314
  Transmission Date: 20250409
  Serious: Yes (Other)
  Sender: ALNYLAM PHARMACEUTICALS
  Company Number: FR-ALNYLAM PHARMACEUTICALS, INC.-ALN-2024-006514

PATIENT

DRUGS (3)
  1. ONPATTRO [Suspect]
     Active Substance: PATISIRAN SODIUM
     Indication: Product used for unknown indication
     Route: 065
  2. AMVUTTRA [Suspect]
     Active Substance: VUTRISIRAN
     Indication: Product used for unknown indication
     Route: 058
  3. VITAMIN A [Concomitant]
     Active Substance: VITAMIN A
     Indication: Product used for unknown indication
     Route: 065

REACTIONS (23)
  - Glaucoma [Unknown]
  - Optic nerve injury [Unknown]
  - Orthostatic hypotension [Unknown]
  - Pyrexia [Unknown]
  - Decreased appetite [Unknown]
  - Pain in extremity [Unknown]
  - Pustule [Unknown]
  - Visual acuity reduced [Unknown]
  - Discomfort [Unknown]
  - Fatigue [Unknown]
  - Ill-defined disorder [Unknown]
  - Gait disturbance [Unknown]
  - Balance disorder [Unknown]
  - Urinary retention [Unknown]
  - Dysstasia [Unknown]
  - Muscular weakness [Unknown]
  - Fine motor skill dysfunction [Unknown]
  - Gastrooesophageal reflux disease [Unknown]
  - Urinary tract infection [Unknown]
  - Tachycardia [Unknown]
  - Diarrhoea [Recovering/Resolving]
  - Dysphagia [Not Recovered/Not Resolved]
  - Dyspepsia [Not Recovered/Not Resolved]

NARRATIVE: CASE EVENT DATE: 20230101
